FAERS Safety Report 9163520 (Version 2)
Quarter: 2013Q2

REPORT INFORMATION
  Report Type: Spontaneous
  Country: US (occurrence: US)
  Receive Date: 20130314
  Receipt Date: 20130408
  Transmission Date: 20140414
  Serious: No
  Sender: FDA-Public Use
  Company Number: US-PFIZER INC-2013084704

PATIENT
  Age: 62 Year
  Sex: Female
  Weight: 52.61 kg

DRUGS (1)
  1. OXYCODONE HYDROCHLORIDE [Suspect]
     Indication: LIMB DISCOMFORT
     Dosage: UNK

REACTIONS (3)
  - Drug ineffective [Unknown]
  - Drug intolerance [Unknown]
  - Abdominal discomfort [Unknown]
